FAERS Safety Report 4647022-3 (Version None)
Quarter: 2005Q2

REPORT INFORMATION
  Report Type: 
  Country: None (occurrence: None)
  Receive Date: 20050331
  Receipt Date: 20050202
  Transmission Date: 20051028
  Serious: No
  Sender: FDA-Public Use
  Company Number: 05P-163-0289560

PATIENT
  Age: 76 Year
  Sex: Female
  Weight: 66.6788 kg

DRUGS (8)
  1. HUMIRA [Suspect]
     Indication: RHEUMATOID ARTHRITIS
     Dosage: 40 MG, 1 IN 2 WK, SUBCUTANEOUS
     Route: 058
     Dates: start: 20031001, end: 20040814
  2. ROFECOXIB [Concomitant]
  3. ALENDRONATE SODIUM [Concomitant]
  4. METHOTREXATE [Concomitant]
  5. GOLD [Concomitant]
  6. VITAMINS [Concomitant]
  7. ASPIRIN [Concomitant]
  8. FOLIC ACID [Concomitant]

REACTIONS (3)
  - DIZZINESS [None]
  - HEADACHE [None]
  - PARAESTHESIA [None]
